FAERS Safety Report 6303795-5 (Version None)
Quarter: 2009Q3

REPORT INFORMATION
  Report Type: 
  Country: None (occurrence: None)
  Receive Date: 20090805
  Receipt Date: 20080721
  Transmission Date: 20100115
  Serious: Yes (Hospitalization)
  Sender: FDA-Public Use
  Company Number: GXKR2009MX08321

PATIENT
  Age: 48 Year
  Sex: Female

DRUGS (4)
  1. CHLORPHENIRAMINE            (CHLORPHENIRAMINE) UNKNOWN [Suspect]
     Indication: BRONCHITIS
  2. CLINDAMYCIN HCL [Suspect]
     Indication: BRONCHITIS
     Dosage: ORAL
     Route: 048
  3. ACETAMINOPHEN [Concomitant]
  4. BETAMETHASONE [Concomitant]

REACTIONS (8)
  - ABDOMINAL PAIN [None]
  - ANAL EROSION [None]
  - CARDIO-RESPIRATORY DISTRESS [None]
  - CHOLESTASIS [None]
  - HEADACHE [None]
  - HEPATITIS [None]
  - STEVENS-JOHNSON SYNDROME [None]
  - VAGINAL EROSION [None]
